FAERS Safety Report 8436270-2 (Version None)
Quarter: 2012Q2

REPORT INFORMATION
  Report Type: 
  Country: None (occurrence: None)
  Receive Date: 20120614
  Receipt Date: 20120606
  Transmission Date: 20120825
  Serious: Yes (Hospitalization, Other)
  Sender: FDA-Public Use
  Company Number: US-ABBOTT-12P-163-0943481-00

PATIENT
  Sex: Female

DRUGS (2)
  1. HUMIRA [Suspect]
     Indication: RHEUMATOID ARTHRITIS
     Route: 058
     Dates: start: 20091201, end: 20111227
  2. HUMIRA [Suspect]
     Dates: start: 20120531

REACTIONS (4)
  - ALOPECIA [None]
  - PARALYSIS [None]
  - PNEUMONIA LEGIONELLA [None]
  - CEREBROVASCULAR ACCIDENT [None]
